FAERS Safety Report 16998866 (Version 1)
Quarter: 2019Q4

REPORT INFORMATION
  Report Type: Spontaneous
  Country: US (occurrence: US)
  Receive Date: 20191105
  Receipt Date: 20191105
  Transmission Date: 20200122
  Serious: Yes (Other)
  Sender: FDA-Public Use
  Company Number: None

PATIENT
  Age: 41 Year
  Sex: Female
  Weight: 84.6 kg

DRUGS (1)
  1. PANZYGA [Suspect]
     Active Substance: HUMAN IMMUNOGLOBULIN G
     Indication: POLYMYOSITIS
     Dosage: ?          OTHER FREQUENCY:Q4WKS;?
     Route: 042
     Dates: start: 20190805, end: 20190807

REACTIONS (1)
  - Neutropenia [None]

NARRATIVE: CASE EVENT DATE: 20190822
